FAERS Safety Report 5661364-4 (Version None)
Quarter: 2008Q1

REPORT INFORMATION
  Report Type: 
  Country: None (occurrence: None)
  Receive Date: 20080312
  Receipt Date: 20080303
  Transmission Date: 20080703
  Serious: Yes (Death)
  Sender: FDA-Public Use
  Company Number: JP-JNJFOC-20080300724

PATIENT
  Age: 72 Year
  Sex: Male

DRUGS (7)
  1. DUROTEP [Suspect]
     Indication: CANCER PAIN
     Route: 062
  2. DECADRON [Concomitant]
     Route: 042
  3. MYSLEE [Concomitant]
     Indication: INSOMNIA
     Route: 048
  4. LOPEMIN [Concomitant]
     Indication: DIARRHOEA
     Route: 048
  5. FESIN [Concomitant]
     Route: 065
  6. ALDACTONE [Concomitant]
     Route: 048
  7. LASIX [Concomitant]
     Route: 048

REACTIONS (1)
  - DISEASE PROGRESSION [None]
